FAERS Safety Report 6150809-1 (Version None)
Quarter: 2009Q2

REPORT INFORMATION
  Report Type: 
  Country: None (occurrence: None)
  Receive Date: 20090409
  Receipt Date: 20090406
  Transmission Date: 20091009
  Serious: Yes (Other)
  Sender: FDA-Public Use
  Company Number: FR-MERCK-0903FRA00097

PATIENT
  Age: 61 Year
  Sex: Female

DRUGS (3)
  1. FOSAMAX PLUS D [Suspect]
     Indication: OSTEOPOROSIS
     Route: 048
     Dates: start: 20080506, end: 20080930
  2. ESOMEPRAZOLE MAGNESIUM [Concomitant]
     Route: 048
  3. NIMESULIDE [Concomitant]
     Indication: TENDONITIS
     Route: 048

REACTIONS (1)
  - DEVICE RELATED INFECTION [None]
